FAERS Safety Report 20949850 (Version 1)
Quarter: 2022Q2

REPORT INFORMATION
  Report Type: Report from Study
  Country: US (occurrence: None)
  Receive Date: 20220613
  Receipt Date: 20220613
  Transmission Date: 20220721
  Serious: Yes (Hospitalization)
  Sender: FDA-Public Use
  Company Number: US-ROCHE-3111214

PATIENT
  Sex: Male

DRUGS (9)
  1. ATEZOLIZUMAB [Suspect]
     Active Substance: ATEZOLIZUMAB
     Indication: Product used for unknown indication
     Dosage: ON 31 MAR 2022, THE PATIENT RECEIVED THE MOST RECENT DOSE OF ATEZOLIZUMAB PRIOR TO THE EVENT.
     Route: 042
     Dates: start: 20211216
  2. XL-092 [Suspect]
     Active Substance: XL-092
     Indication: Product used for unknown indication
     Dosage: ON 20 APR 2022,?THE PATIENT RECEIVED THE MOST RECENT DOSE OF XL092 80 MG PRIOR TO THE EVENT.
     Route: 048
     Dates: start: 20211216
  3. XL-092 [Suspect]
     Active Substance: XL-092
     Route: 048
  4. METOPROLOL TARTRATE [Concomitant]
     Active Substance: METOPROLOL TARTRATE
  5. VALSARTAN [Concomitant]
     Active Substance: VALSARTAN
  6. ATORVASTATIN [Concomitant]
     Active Substance: ATORVASTATIN
  7. ASPIRIN [Concomitant]
     Active Substance: ASPIRIN
  8. BACILLUS COAGULANS [Concomitant]
     Active Substance: BACILLUS COAGULANS
  9. CHOLECALCIFEROL [Concomitant]
     Active Substance: CHOLECALCIFEROL

REACTIONS (1)
  - Appendicitis [Recovered/Resolved]

NARRATIVE: CASE EVENT DATE: 20220421
